FAERS Safety Report 22299869 (Version 2)
Quarter: 2023Q2

REPORT INFORMATION
  Report Type: Spontaneous
  Country: GB (occurrence: GB)
  Receive Date: 20230509
  Receipt Date: 20230519
  Transmission Date: 20230721
  Serious: Yes (Other)
  Sender: FDA-Public Use
  Company Number: GB-ROCHE-3340226

PATIENT
  Age: 58 Year
  Sex: Male

DRUGS (12)
  1. BENDAMUSTINE [Suspect]
     Active Substance: BENDAMUSTINE
     Indication: Diffuse large B-cell lymphoma
     Dosage: DURATION : 2 DAYS, CYCLIC
     Route: 042
     Dates: start: 20230209, end: 20230210
  2. CISPLATIN [Suspect]
     Active Substance: CISPLATIN
     Indication: Diffuse large B-cell lymphoma
     Dosage: DURATION : 40 DAYS
     Route: 065
     Dates: start: 20221220, end: 20230128
  3. DEXAMETHASONE [Suspect]
     Active Substance: DEXAMETHASONE
     Indication: Diffuse large B-cell lymphoma
     Dosage: DURATION : 40 DAYS
     Route: 065
     Dates: start: 20221220, end: 20230128
  4. DOXORUBICIN [Suspect]
     Active Substance: DOXORUBICIN
     Indication: Diffuse large B-cell lymphoma
     Dosage: DURATION : 124 DAYS
     Route: 065
     Dates: start: 20220701, end: 20221101
  5. VINCRISTINE [Suspect]
     Active Substance: VINCRISTINE
     Indication: Diffuse large B-cell lymphoma
     Dosage: DURATION : 124 DAYS
     Route: 065
     Dates: start: 20220701, end: 20221101
  6. GEMCITABINE [Suspect]
     Active Substance: GEMCITABINE
     Indication: Diffuse large B-cell lymphoma
     Dosage: DURATION : 40 DAYS
     Route: 065
     Dates: start: 20221220, end: 20230128
  7. CYCLOPHOSPHAMIDE [Suspect]
     Active Substance: CYCLOPHOSPHAMIDE
     Indication: Diffuse large B-cell lymphoma
     Dosage: DURATION : 124 DAYS
     Route: 065
     Dates: start: 20220701, end: 20221101
  8. POLIVY [Suspect]
     Active Substance: POLATUZUMAB VEDOTIN-PIIQ
     Indication: Diffuse large B-cell lymphoma
     Dosage: DURATION : 2 DAYS
     Route: 065
     Dates: start: 20230209, end: 20230210
  9. PREDNISONE [Suspect]
     Active Substance: PREDNISONE
     Indication: Diffuse large B-cell lymphoma
     Dosage: DURATION : 124 DAYS
     Route: 065
     Dates: start: 20220701, end: 20221101
  10. RITUXIMAB [Suspect]
     Active Substance: RITUXIMAB
     Indication: Diffuse large B-cell lymphoma
     Dosage: DURATION : 40 DAYS
     Route: 065
     Dates: start: 20221220, end: 20230128
  11. RITUXIMAB [Suspect]
     Active Substance: RITUXIMAB
     Dosage: DURATION : 124 DAYS
     Route: 065
     Dates: start: 20220701, end: 20221101
  12. RITUXIMAB [Suspect]
     Active Substance: RITUXIMAB
     Dosage: DURATION : 2 DAYS
     Route: 065
     Dates: start: 20230209, end: 20230210

REACTIONS (2)
  - Malignant neoplasm progression [Unknown]
  - Off label use [Unknown]

NARRATIVE: CASE EVENT DATE: 20230209
